FAERS Safety Report 6542161-4 (Version None)
Quarter: 2010Q1

REPORT INFORMATION
  Report Type: 
  Country: None (occurrence: None)
  Receive Date: 20100119
  Receipt Date: 20100114
  Transmission Date: 20100710
  Serious: Yes (Other)
  Sender: FDA-Public Use
  Company Number: IT-JNJFOC-20100105218

PATIENT
  Sex: Male

DRUGS (1)
  1. LEVOXACIN [Suspect]
     Indication: DRUG USE FOR UNKNOWN INDICATION
     Route: 065

REACTIONS (3)
  - DELUSION [None]
  - HALLUCINATION, VISUAL [None]
  - PSYCHOMOTOR HYPERACTIVITY [None]
